FAERS Safety Report 6333090-X (Version None)
Quarter: 2009Q3

REPORT INFORMATION
  Report Type: 
  Country: None (occurrence: None)
  Receive Date: 20090828
  Receipt Date: 20090618
  Transmission Date: 20100115
  Serious: Yes (Hospitalization)
  Sender: FDA-Public Use
  Company Number: NL-ROCHE-652647

PATIENT
  Sex: Male

DRUGS (3)
  1. CAPECITABINE [Suspect]
     Indication: COLORECTAL CANCER
     Dosage: DATE: LAST CYCLE: 16 JUNE 2009
     Route: 048
     Dates: start: 20090616
  2. BEVACIZUMAB [Suspect]
     Indication: COLORECTAL CANCER
     Dosage: DATE: LAST CYCLE: 16 JUNE 2009
     Route: 042
     Dates: start: 20090616
  3. OXALIPLATIN [Suspect]
     Indication: COLORECTAL CANCER
     Dosage: DATE: LAST CYCLE: 16 JUNE 2009
     Route: 042
     Dates: start: 20090616

REACTIONS (3)
  - DISEASE PROGRESSION [None]
  - HEPATIC FUNCTION ABNORMAL [None]
  - MALAISE [None]
